FAERS Safety Report 8367103-0 (Version None)
Quarter: 2012Q2

REPORT INFORMATION
  Report Type: 
  Country: None (occurrence: None)
  Receive Date: 20120517
  Receipt Date: 20120504
  Transmission Date: 20120825
  Serious: Yes (Hospitalization)
  Sender: FDA-Public Use
  Company Number: US-ASTRAZENECA-2012SE29258

PATIENT
  Age: 72 Year
  Sex: Male

DRUGS (4)
  1. NEXIUM [Suspect]
     Route: 048
  2. LORTAB [Concomitant]
  3. SYNTHROID [Concomitant]
  4. TOPROL-XL [Suspect]
     Route: 048

REACTIONS (3)
  - MUSCULOSKELETAL DISORDER [None]
  - HYPERTHYROIDISM [None]
  - HALLUCINATION [None]
